FAERS Safety Report 25836609 (Version 1)
Quarter: 2025Q3

REPORT INFORMATION
  Report Type: Spontaneous
  Country: EU (occurrence: EU)
  Receive Date: 20250923
  Receipt Date: 20250923
  Transmission Date: 20251021
  Serious: Yes (Hospitalization, Other)
  Sender: BAXTER
  Company Number: None

PATIENT
  Age: 16 Year
  Sex: Male

DRUGS (10)
  1. METRONIDAZOLE [Suspect]
     Active Substance: METRONIDAZOLE
     Indication: Infection
     Dosage: (500MG*3/DAY )
     Route: 042
     Dates: start: 20250811, end: 20250816
  2. ACYCLOVIR [Suspect]
     Active Substance: ACYCLOVIR
     Indication: Infection
     Dosage: (600MG*4/DAY)
     Route: 042
     Dates: start: 20250812, end: 20250814
  3. CEFOTAXIME [Suspect]
     Active Substance: CEFOTAXIME SODIUM
     Indication: Infection
     Dosage: (2G*4/DAY)
     Route: 042
     Dates: start: 20250808, end: 20250813
  4. CLINDAMYCIN HYDROCHLORIDE [Suspect]
     Active Substance: CLINDAMYCIN HYDROCHLORIDE
     Indication: Infection
     Dosage: (900MG*3/DAY)
     Route: 042
     Dates: start: 20250808, end: 20250813
  5. TRIMEPRAZINE [Concomitant]
     Active Substance: TRIMEPRAZINE
     Indication: Mental disorder
     Dosage: (20MG*3/DAY)
     Route: 048
     Dates: start: 20250801, end: 20250804
  6. TRANXENE [Concomitant]
     Active Substance: CLORAZEPATE DIPOTASSIUM
     Indication: Mental disorder
     Dosage: (5MG*3/DAY)
     Route: 048
     Dates: start: 20250801, end: 20250805
  7. MELATONIN [Concomitant]
     Active Substance: MELATONIN
     Indication: Mental disorder
     Dosage: 2 MG, QD
     Route: 048
     Dates: end: 20250814
  8. FYCOMPA [Concomitant]
     Active Substance: PERAMPANEL
     Indication: Mental disorder
     Dosage: 8 MG, QD
     Route: 048
  9. VALPROATE SODIUM [Concomitant]
     Active Substance: VALPROATE SODIUM
     Indication: Mental disorder
     Dosage: 1 GRAM, TWICE DAILY
     Route: 048
  10. CLOBAZAM [Concomitant]
     Active Substance: CLOBAZAM
     Indication: Mental disorder
     Dosage: 10 MG, QD
     Route: 048

REACTIONS (1)
  - Altered state of consciousness [Recovering/Resolving]

NARRATIVE: CASE EVENT DATE: 20250812
